FAERS Safety Report 7289384-7 (Version None)
Quarter: 2011Q1

REPORT INFORMATION
  Report Type: 
  Country: None (occurrence: None)
  Receive Date: 20110211
  Receipt Date: 20110208
  Transmission Date: 20110831
  Serious: Yes (Hospitalization)
  Sender: FDA-Public Use
  Company Number: DE-PFIZER INC-2009260406

PATIENT
  Age: 47 Year
  Sex: Female
  Weight: 83 kg

DRUGS (9)
  1. LACTULOSE [Concomitant]
     Indication: INTESTINAL FUNCTIONAL DISORDER
     Dosage: 5 ML, 2X/DAY
     Route: 048
  2. ALPRAZOLAM [Suspect]
     Indication: DEPRESSION
     Dosage: 1 MG, 1X/DAY
     Route: 048
  3. PALIPERIDONE [Suspect]
     Dosage: 6 MG, 1X/DAY
     Route: 048
  4. PALLADONE [Suspect]
     Indication: FIBROMYALGIA
     Dosage: 16 MG, 2X/DAY
     Route: 048
  5. PANTOPRAZOLE [Suspect]
     Indication: GASTRITIS
     Dosage: 1 DF, 1X/DAY
     Route: 048
  6. LYRICA [Suspect]
     Indication: FIBROMYALGIA
     Dosage: 75 MG, 2X/DAY
     Route: 048
  7. BEFIBRAT [Concomitant]
     Dosage: 200 MG, 1X/DAY
     Route: 048
  8. VITAMIN B COMPLEX [Concomitant]
     Indication: VITAMIN B6 DEFICIENCY
     Dosage: UNK
     Route: 048
  9. CITALOPRAM [Suspect]
     Indication: DEPRESSION
     Dosage: 20 MG, 1X/DAY
     Route: 048

REACTIONS (1)
  - CONSTIPATION [None]
